FAERS Safety Report 15424087 (Version 1)
Quarter: 2018Q3

REPORT INFORMATION
  Report Type: Report from Study
  Country: CO (occurrence: CO)
  Receive Date: 20180925
  Receipt Date: 20180925
  Transmission Date: 20181010
  Serious: Yes (Hospitalization)
  Sender: FDA-Public Use
  Company Number: PHHY2018CO100310

PATIENT
  Sex: Female
  Weight: 65 kg

DRUGS (1)
  1. TYKERB [Suspect]
     Active Substance: LAPATINIB DITOSYLATE
     Indication: BREAST CANCER
     Dosage: 1250 MG, QD
     Route: 048
     Dates: start: 20180626

REACTIONS (4)
  - Dysstasia [Unknown]
  - Seizure [Unknown]
  - Cerebral disorder [Unknown]
  - Hypoaesthesia [Unknown]
